FAERS Safety Report 9554656 (Version 1)
Quarter: 2013Q3

REPORT INFORMATION
  Report Type: Spontaneous
  Country: US (occurrence: US)
  Receive Date: 20130925
  Receipt Date: 20130925
  Transmission Date: 20140515
  Serious: Yes (Other)
  Sender: FDA-Public Use
  Company Number: US-PFIZER INC-2013275108

PATIENT
  Age: 73 Year
  Sex: Female
  Weight: 88.4 kg

DRUGS (3)
  1. OXYCODONE HYDROCHLORIDE [Suspect]
     Indication: BACK DISORDER
     Dosage: 5 MG, AS NEEDED
     Route: 048
     Dates: start: 20120913, end: 201305
  2. PERCOCET [Suspect]
     Indication: BACK DISORDER
     Dosage: 10/325 MG, AS NEEDED
     Route: 048
     Dates: start: 20120913, end: 201305
  3. LEVOXYL [Concomitant]
     Indication: HYPOTHYROIDISM
     Dosage: 1X/DAY
     Route: 048

REACTIONS (2)
  - Mitral valve incompetence [Unknown]
  - Arrhythmia [Unknown]
